FAERS Safety Report 24785051 (Version 1)
Quarter: 2024Q4

REPORT INFORMATION
  Report Type: Spontaneous
  Country: FR (occurrence: FR)
  Receive Date: 20241228
  Receipt Date: 20241228
  Transmission Date: 20250114
  Serious: Yes (Other)
  Sender: CELLTRION
  Company Number: FR-CELLTRION INC.-2024FR032690

PATIENT

DRUGS (1)
  1. INFLIXIMAB [Suspect]
     Active Substance: INFLIXIMAB
     Indication: Crohn^s disease
     Dosage: 300 MG INFUSION

REACTIONS (17)
  - Arthropathy [Unknown]
  - Suicidal ideation [Unknown]
  - Renal atrophy [Unknown]
  - Hormone level abnormal [Unknown]
  - Menstrual clots [Unknown]
  - Menstrual disorder [Unknown]
  - Blood pressure increased [Unknown]
  - Depression [Unknown]
  - Heavy menstrual bleeding [Unknown]
  - Alopecia [Unknown]
  - Heart rate increased [Unknown]
  - Pruritus [Unknown]
  - Urinary tract infection [Unknown]
  - Fungal infection [Unknown]
  - Headache [Unknown]
  - Vomiting [Unknown]
  - Nausea [Unknown]
